FAERS Safety Report 18244999 (Version 1)
Quarter: 2020Q3

REPORT INFORMATION
  Report Type: Spontaneous
  Country: IL (occurrence: IL)
  Receive Date: 20200909
  Receipt Date: 20200909
  Transmission Date: 20201103
  Serious: Yes (Hospitalization, Other)
  Sender: FDA-Public Use
  Company Number: IL-LUPIN PHARMACEUTICALS INC.-2020-05595

PATIENT
  Age: 63 Year
  Sex: Female

DRUGS (5)
  1. SIMVASTATIN. [Suspect]
     Active Substance: SIMVASTATIN
     Indication: DYSLIPIDAEMIA
     Dosage: UNK
     Route: 065
  2. DASABUVIR [Suspect]
     Active Substance: DASABUVIR
     Indication: HEPATITIS C
     Dosage: UNK
     Route: 065
  3. PARITAPREVIR [Interacting]
     Active Substance: PARITAPREVIR
     Indication: HEPATITIS C
     Dosage: UNK
     Route: 065
  4. RITONAVIR. [Interacting]
     Active Substance: RITONAVIR
     Indication: HEPATITIS C
     Dosage: UNK
     Route: 065
  5. OMBITASVIR [Suspect]
     Active Substance: OMBITASVIR
     Indication: HEPATITIS C
     Dosage: UNK
     Route: 065

REACTIONS (4)
  - Drug interaction [Unknown]
  - Rhabdomyolysis [Recovered/Resolved]
  - Liver injury [Recovered/Resolved]
  - Myopathy [Recovered/Resolved]
